FAERS Safety Report 7728933-9 (Version None)
Quarter: 2011Q3

REPORT INFORMATION
  Report Type: 
  Country: None (occurrence: None)
  Receive Date: 20110831
  Receipt Date: 20110831
  Transmission Date: 20111222
  Serious: Yes (Hospitalization, Disabling)
  Sender: FDA-Public Use
  Company Number: None

PATIENT
  Sex: Female
  Weight: 68.0396 kg

DRUGS (1)
  1. LOPROX [Suspect]
     Indication: TINEA VERSICOLOUR
     Dosage: LOPROX LOTION 2X A DAY TOPICAL (120ML)
     Route: 061
     Dates: start: 20110802

REACTIONS (1)
  - CHEMICAL BURN OF SKIN [None]
